FAERS Safety Report 7274787-7 (Version None)
Quarter: 2011Q1

REPORT INFORMATION
  Report Type: 
  Country: None (occurrence: None)
  Receive Date: 20110128
  Receipt Date: 20110112
  Transmission Date: 20110831
  Serious: Yes (Life-Threatening, Hospitalization)
  Sender: FDA-Public Use
  Company Number: DSA_44685_2011

PATIENT
  Age: 67 Year
  Sex: Male

DRUGS (7)
  1. DIPYRIDAMOLE [Concomitant]
  2. OMEPRAZOLE [Concomitant]
  3. ESTRACYT /00327002/ (ESTRACYT-ESTRAMUSTINE PHOSPHATE SODIUM) (NOT SPEC [Suspect]
     Indication: PROSTATE CANCER
     Dosage: 140 MG TID ORAL
     Route: 048
     Dates: start: 20070101
  4. LANTUS [Concomitant]
  5. PAROXETINE [Concomitant]
  6. ENALAPRIL MALEATE [Suspect]
     Indication: HYPERTENSION
     Dosage: 10 MG QD ORAL
     Route: 048
     Dates: start: 20100301, end: 20101230
  7. CARBASPIRIN CALCIUM [Concomitant]

REACTIONS (2)
  - ANGIOEDEMA [None]
  - DRUG INTERACTION [None]
